FAERS Safety Report 18486652 (Version 2)
Quarter: 2021Q1

REPORT INFORMATION
  Report Type: Spontaneous
  Country: DE (occurrence: DE)
  Receive Date: 20201110
  Receipt Date: 20210310
  Transmission Date: 20210419
  Serious: Yes (Hospitalization, Other)
  Sender: FDA-Public Use
  Company Number: DE-BAUSCH-BL-2020-032158

PATIENT
  Sex: Female

DRUGS (14)
  1. NIVOLUMAB [Suspect]
     Active Substance: NIVOLUMAB
     Dosage: 240 MILLIGRAM, Q2WK
     Route: 042
     Dates: start: 20191209
  2. NIVOLUMAB [Suspect]
     Active Substance: NIVOLUMAB
     Dosage: 480 MILLIGRAM, Q4WK
     Route: 042
     Dates: start: 20200108
  3. INSUMAN RAPID [Concomitant]
     Active Substance: INSULIN HUMAN
     Indication: PRODUCT USED FOR UNKNOWN INDICATION
     Dosage: 4 INTERNATIONAL UNIT
     Route: 065
  4. METFORMINE [Suspect]
     Active Substance: METFORMIN HYDROCHLORIDE
     Indication: DIABETES MELLITUS
     Dosage: 1000 MILLIGRAM, BID
     Route: 065
     Dates: start: 20200304
  5. NIVOLUMAB [Suspect]
     Active Substance: NIVOLUMAB
     Indication: MALIGNANT MELANOMA
     Dosage: 480 MILLIGRAM, Q4WK
     Route: 042
     Dates: start: 20191209
  6. NIVOLUMAB [Suspect]
     Active Substance: NIVOLUMAB
     Dosage: 240 MILLIGRAM, Q2WK
     Route: 042
     Dates: start: 20200205
  7. NIVOLUMAB [Suspect]
     Active Substance: NIVOLUMAB
     Dosage: 240 MILLIGRAM, Q2WK
     Route: 042
     Dates: start: 20200219
  8. METFORMINE [Suspect]
     Active Substance: METFORMIN HYDROCHLORIDE
     Dosage: 850 MILLIGRAM, BID
     Route: 048
     Dates: start: 20200313, end: 20200730
  9. NIVOLUMAB [Suspect]
     Active Substance: NIVOLUMAB
     Dosage: 240 MILLIGRAM, Q2WK
     Route: 042
     Dates: start: 20200304
  10. NIVOLUMAB [Suspect]
     Active Substance: NIVOLUMAB
     Dosage: 240 MILLIGRAM, Q2WK
     Route: 042
     Dates: start: 20200318
  11. PIPERACILLIN. [Concomitant]
     Active Substance: PIPERACILLIN SODIUM
     Indication: PRODUCT USED FOR UNKNOWN INDICATION
     Dosage: 4.5 MILLIGRAM, TID
     Route: 065
     Dates: start: 20200115, end: 20200124
  12. HYDROCORTISON [HYDROCORTISONE] [Concomitant]
     Indication: PRODUCT USED FOR UNKNOWN INDICATION
     Route: 048
  13. MEROPENEM. [Concomitant]
     Active Substance: MEROPENEM
     Indication: PRODUCT USED FOR UNKNOWN INDICATION
     Route: 065
  14. INSUMAN RAPID [Concomitant]
     Active Substance: INSULIN HUMAN
     Dosage: 6 INTERNATIONAL UNIT
     Route: 065
     Dates: start: 20200313

REACTIONS (5)
  - Diabetes mellitus [Not Recovered/Not Resolved]
  - Diarrhoea [Recovered/Resolved]
  - Escherichia urinary tract infection [Recovered/Resolved]
  - Hypophysitis [Recovering/Resolving]
  - Hypothyroidism [Recovering/Resolving]

NARRATIVE: CASE EVENT DATE: 20191209
